FAERS Safety Report 9110121 (Version 2)
Quarter: 2013Q3

REPORT INFORMATION
  Report Type: Spontaneous
  Country: FR (occurrence: FR)
  Receive Date: 20130222
  Receipt Date: 20130719
  Transmission Date: 20140515
  Serious: No
  Sender: FDA-Public Use
  Company Number: FR-JNJFOC-20130206636

PATIENT
  Age: 18 Year
  Sex: Male

DRUGS (8)
  1. RISPERDAL [Suspect]
     Indication: PSYCHOTIC DISORDER
     Route: 048
     Dates: start: 201102
  2. RISPERIDONE [Suspect]
     Indication: PSYCHOTIC DISORDER
     Route: 048
     Dates: start: 20120222, end: 20130529
  3. TERCIAN [Suspect]
     Indication: PSYCHOTIC DISORDER
     Dosage: 5 DROPS - 0 - 10 DROPS
     Route: 048
     Dates: start: 20120222, end: 20120403
  4. LEPTICUR [Suspect]
     Indication: PSYCHOTIC DISORDER
     Route: 048
     Dates: start: 20120213, end: 20130529
  5. NASONEX [Concomitant]
     Indication: HYPERSENSITIVITY
     Route: 045
  6. XYZALL [Concomitant]
     Indication: HYPERSENSITIVITY
     Route: 048
  7. SERETIDE [Concomitant]
     Indication: HYPERSENSITIVITY
     Dosage: 250 DIKUS
     Route: 055
  8. SALBUTAMOL [Concomitant]
     Indication: HYPERSENSITIVITY
     Dosage: 2 PER DAY IF NECESSARY (3 MAX),
     Route: 065

REACTIONS (3)
  - Joint contracture [Recovered/Resolved]
  - Musculoskeletal stiffness [Recovered/Resolved]
  - Drug dispensing error [Unknown]
